FAERS Safety Report 9757584 (Version 2)
Quarter: 2013Q4

REPORT INFORMATION
  Report Type: Spontaneous
  Country: US (occurrence: US)
  Receive Date: 20131216
  Receipt Date: 20131216
  Transmission Date: 20140711
  Serious: Yes (Hospitalization)
  Sender: FDA-Public Use
  Company Number: US-BIOGENIDEC-2006BI008165

PATIENT
  Age: 49 Year
  Sex: Female
  Weight: 70 kg

DRUGS (3)
  1. AVONEX [Suspect]
     Indication: MULTIPLE SCLEROSIS
     Route: 030
     Dates: start: 2000, end: 200508
  2. AVONEX [Suspect]
     Indication: MULTIPLE SCLEROSIS
     Route: 030
     Dates: start: 2005, end: 2006
  3. AVONEX [Suspect]
     Indication: MULTIPLE SCLEROSIS
     Route: 030
     Dates: start: 2006

REACTIONS (17)
  - Spinal disorder [Unknown]
  - Back pain [Recovered/Resolved]
  - Dysstasia [Recovered/Resolved]
  - Spinal column stenosis [Not Recovered/Not Resolved]
  - Back disorder [Recovered/Resolved]
  - Facet joint syndrome [Unknown]
  - Weight increased [Unknown]
  - Weight decreased [Unknown]
  - Faecal incontinence [Not Recovered/Not Resolved]
  - Stress [Not Recovered/Not Resolved]
  - Hypotonia [Not Recovered/Not Resolved]
  - Memory impairment [Unknown]
  - Nerve injury [Not Recovered/Not Resolved]
  - Adverse drug reaction [Recovered/Resolved]
  - Insomnia [Not Recovered/Not Resolved]
  - Muscle tightness [Recovered/Resolved]
  - Influenza like illness [Recovered/Resolved]
